FAERS Safety Report 12431059 (Version 3)
Quarter: 2017Q3

REPORT INFORMATION
  Report Type: Report from Study
  Country: CA (occurrence: CA)
  Receive Date: 20160603
  Receipt Date: 20170704
  Transmission Date: 20171127
  Serious: Yes (Death, Hospitalization)
  Sender: FDA-Public Use
  Company Number: CA-ROCHE-1768470

PATIENT
  Age: 72 Year

DRUGS (7)
  1. PANTOLOC [Concomitant]
     Active Substance: PANTOPRAZOLE SODIUM
  2. VALSARTAN. [Concomitant]
     Active Substance: VALSARTAN
  3. ATORVASTATIN [Concomitant]
     Active Substance: ATORVASTATIN
  4. AVELOX [Concomitant]
     Active Substance: MOXIFLOXACIN HYDROCHLORIDE
  5. OXYGEN. [Concomitant]
     Active Substance: OXYGEN
  6. PIRFENIDONE. [Suspect]
     Active Substance: PIRFENIDONE
     Indication: IDIOPATHIC PULMONARY FIBROSIS
     Route: 048
     Dates: start: 20130520
  7. AAS [Concomitant]
     Active Substance: ASPIRIN

REACTIONS (2)
  - Pneumonia [Recovered/Resolved]
  - Pneumothorax [Fatal]

NARRATIVE: CASE EVENT DATE: 20160206
